FAERS Safety Report 7311069-9 (Version None)
Quarter: 2011Q1

REPORT INFORMATION
  Report Type: 
  Country: None (occurrence: None)
  Receive Date: 20110224
  Receipt Date: 20110215
  Transmission Date: 20110831
  Serious: Yes (Death, Hospitalization, Other)
  Sender: FDA-Public Use
  Company Number: US-PFIZER INC-2010139053

PATIENT
  Sex: Female
  Weight: 136 kg

DRUGS (10)
  1. LIPITOR [Suspect]
     Indication: BLOOD CHOLESTEROL INCREASED
     Dosage: 20 MG, DAILY
     Route: 048
  2. ZOLOFT [Suspect]
     Indication: DEPRESSION
     Dosage: 50 MG, 3X/DAY
     Route: 048
  3. LANTUS [Concomitant]
     Dosage: UNK
  4. POTASSIUM CHLORIDE [Concomitant]
     Dosage: 20 MEQ, UNK
  5. LEVOTHYROXINE [Concomitant]
     Dosage: 175 MG, UNK
  6. CEPHALEXIN [Concomitant]
     Dosage: 250 MG, UNK
  7. FUROSEMIDE [Concomitant]
     Dosage: 20 MG, UNK
  8. METFORMIN [Concomitant]
  9. ZOLPIDEM [Concomitant]
     Dosage: 12.5 MG, UNK
  10. ACETYLSALICYLIC ACID [Concomitant]
     Dosage: 81 MG, UNK

REACTIONS (24)
  - RESPIRATORY FAILURE [None]
  - OPEN WOUND [None]
  - HYPOTENSION [None]
  - NEPHROLITHIASIS [None]
  - DEPRESSION [None]
  - RENAL IMPAIRMENT [None]
  - HEPATIC FUNCTION ABNORMAL [None]
  - RENAL FAILURE [None]
  - RALES [None]
  - HEPATIC CIRRHOSIS [None]
  - HYPERTENSION [None]
  - OBSTRUCTIVE AIRWAYS DISORDER [None]
  - SKIN DISORDER [None]
  - COAGULOPATHY [None]
  - RENAL FAILURE CHRONIC [None]
  - MULTI-ORGAN FAILURE [None]
  - SEPSIS [None]
  - CARDIAC FAILURE [None]
  - HEPATIC FAILURE [None]
  - WOUND INFECTION [None]
  - ERYTHEMA [None]
  - DIABETES MELLITUS [None]
  - GENERALISED OEDEMA [None]
  - MOVEMENT DISORDER [None]
